FAERS Safety Report 9676166 (Version 2)
Quarter: 2013Q4

REPORT INFORMATION
  Report Type: Spontaneous
  Country: GB (occurrence: GB)
  Receive Date: 20131107
  Receipt Date: 20131113
  Transmission Date: 20140711
  Serious: Yes (Other)
  Sender: FDA-Public Use
  Company Number: GB-ACTAVIS-2013-20424

PATIENT
  Age: 17 Year
  Sex: Male

DRUGS (6)
  1. SALBUTAMOL (UNKNOWN) [Suspect]
     Indication: ASTHMA
     Dosage: UNK, STRENGTH: 100 MCG; ONE PUFF AS NEEDED
     Route: 055
     Dates: start: 20121010
  2. ELOCON [Concomitant]
     Indication: PRODUCT USED FOR UNKNOWN INDICATION
     Dosage: APPLY DAILY
     Route: 065
     Dates: start: 20101101
  3. OILATUM                            /01690401/ [Concomitant]
     Indication: PRODUCT USED FOR UNKNOWN INDICATION
     Dosage: UNK, AS DIRECTED
     Route: 065
     Dates: start: 20101101
  4. CETIRIZINE [Concomitant]
     Indication: PRODUCT USED FOR UNKNOWN INDICATION
     Dosage: 10 MG, DAILY
     Route: 065
     Dates: start: 20110504
  5. MONTELUKAST [Concomitant]
     Indication: PRODUCT USED FOR UNKNOWN INDICATION
     Dosage: 1 N
     Route: 065
     Dates: start: 20101101, end: 20110504
  6. TERBUTALINE [Concomitant]
     Indication: PRODUCT USED FOR UNKNOWN INDICATION
     Dosage: STRENGTH: 500 MG; 1P;AS NEEDED
     Route: 065
     Dates: start: 20110609, end: 20120423

REACTIONS (5)
  - Drug ineffective [Recovered/Resolved]
  - Device malfunction [Unknown]
  - Product quality issue [Unknown]
  - Device occlusion [Unknown]
  - Product physical issue [Unknown]
